FAERS Safety Report 10151754 (Version 2)
Quarter: 2014Q2

REPORT INFORMATION
  Report Type: Spontaneous
  Country: US (occurrence: US)
  Receive Date: 20140505
  Receipt Date: 20140522
  Transmission Date: 20141212
  Serious: Yes (Death, Hospitalization)
  Sender: FDA-Public Use
  Company Number: US-BIOGENIDEC-2014BI039476

PATIENT
  Age: 63 Year
  Sex: Male

DRUGS (4)
  1. TECFIDERA [Suspect]
     Indication: MULTIPLE SCLEROSIS
     Route: 048
     Dates: start: 20140110, end: 20140419
  2. BISACODYL [Concomitant]
     Indication: LAXATIVE SUPPORTIVE CARE
  3. ATORVASTATIN CALCIUM [Concomitant]
  4. ACETAMINOPHEN [Concomitant]

REACTIONS (1)
  - Respiratory failure [Fatal]
